FAERS Safety Report 10727414 (Version 1)
Quarter: 2015Q1

REPORT INFORMATION
  Report Type: Report from Study
  Country: BR (occurrence: BR)
  Receive Date: 20150121
  Receipt Date: 20150121
  Transmission Date: 20150721
  Serious: Yes (Hospitalization, Other)
  Sender: FDA-Public Use
  Company Number: BR-ABBVIE-13P-020-1140011-00

PATIENT
  Age: 55 Year
  Sex: Male
  Weight: 110 kg

DRUGS (4)
  1. HUMIRA [Suspect]
     Active Substance: ADALIMUMAB
     Indication: PSORIATIC ARTHROPATHY
     Dosage: LOADING DOSE, UNSPECIFIED INDUCTION DOSE
     Route: 058
  2. CYCLOSPORINE. [Suspect]
     Active Substance: CYCLOSPORINE
     Indication: PSORIASIS
     Route: 048
     Dates: end: 2012
  3. HUMIRA [Suspect]
     Active Substance: ADALIMUMAB
     Dosage: UNSPECIFIED INDUCTION DOSE
     Route: 058
     Dates: end: 201308
  4. CYCLOSPORINE. [Suspect]
     Active Substance: CYCLOSPORINE
     Indication: PROPHYLAXIS

REACTIONS (15)
  - Dermatitis exfoliative [Recovered/Resolved]
  - Skin burning sensation [Recovered/Resolved]
  - Skin discolouration [Recovering/Resolving]
  - Dermatitis [Recovered/Resolved]
  - Hypersensitivity [Recovered/Resolved]
  - Arthralgia [Not Recovered/Not Resolved]
  - Pruritus [Recovered/Resolved]
  - Psoriatic arthropathy [Not Recovered/Not Resolved]
  - Pain [Unknown]
  - Burning sensation [Not Recovered/Not Resolved]
  - Musculoskeletal pain [Unknown]
  - Infection [Not Recovered/Not Resolved]
  - Pain in extremity [Unknown]
  - Ocular icterus [Unknown]
  - Liver disorder [Unknown]

NARRATIVE: CASE EVENT DATE: 201207
